FAERS Safety Report 9782884 (Version 1)
Quarter: 2013Q4

REPORT INFORMATION
  Report Type: Spontaneous
  Country: US (occurrence: None)
  Receive Date: 20131224
  Receipt Date: 20131224
  Transmission Date: 20140711
  Serious: No
  Sender: FDA-Public Use
  Company Number: None

PATIENT
  Sex: Female

DRUGS (2)
  1. AMBIEN [Suspect]
     Indication: INSOMNIA
     Route: 048
  2. LUNESTA [Suspect]
     Indication: INSOMNIA
     Dosage: 1 PILL
     Route: 048

REACTIONS (1)
  - Drug ineffective [None]
